FAERS Safety Report 7959314-0 (Version None)
Quarter: 2011Q4

REPORT INFORMATION
  Report Type: 
  Country: None (occurrence: None)
  Receive Date: 20111206
  Receipt Date: 20111122
  Transmission Date: 20120403
  Serious: Yes (Life-Threatening, Hospitalization, Disabling, Other)
  Sender: FDA-Public Use
  Company Number: JP-PFIZER INC-2011231445

PATIENT
  Age: 64 Year
  Sex: Male
  Weight: 73 kg

DRUGS (12)
  1. MARZULENE S [Concomitant]
     Indication: GASTRITIS PROPHYLAXIS
     Dosage: UNK
     Route: 048
     Dates: start: 20110905
  2. MUCOSTA [Concomitant]
     Indication: GASTRITIS PROPHYLAXIS
     Dosage: UNK
     Route: 048
     Dates: start: 20110905
  3. PAZUCROSS [Concomitant]
     Dosage: 1000 MG, 1X/DAY
     Route: 041
     Dates: start: 20110829, end: 20110904
  4. ZYVOX [Suspect]
     Indication: STAPHYLOCOCCAL INFECTION
     Dosage: 600 MG, 2X/DAY
     Route: 041
     Dates: start: 20110905, end: 20110912
  5. ALLOID [Concomitant]
     Indication: GASTRITIS PROPHYLAXIS
     Dosage: UNK
     Route: 048
     Dates: start: 20110905
  6. PAZUCROSS [Concomitant]
     Indication: PNEUMONIA LEGIONELLA
     Dosage: 1000 MG, 2X/DAY
     Route: 041
     Dates: start: 20110814, end: 20110828
  7. OMEPRAZOLE [Concomitant]
     Dosage: UNK
     Route: 041
     Dates: start: 20110905
  8. POTASSIUM CHLORIDE [Concomitant]
     Indication: MINERAL SUPPLEMENTATION
     Dosage: UNK
     Route: 041
     Dates: start: 20110905
  9. NEOPHAGEN [Concomitant]
     Indication: DRUG THERAPY
     Dosage: UNK
     Route: 041
     Dates: start: 20110905
  10. POLYCARBOPHIL CALCIUM [Concomitant]
     Indication: CONSTIPATION
     Dosage: UNK
     Route: 048
     Dates: start: 20110905
  11. TARGOCID [Concomitant]
     Indication: STAPHYLOCOCCAL INFECTION
     Dosage: 600 MG, 2X/DAY
     Route: 041
     Dates: start: 20110903, end: 20110904
  12. SOLUTIONS FOR PARENTERAL NUTRITION [Concomitant]
     Indication: MEDICAL DIET
     Dosage: 11000 ML/DAY
     Route: 041

REACTIONS (1)
  - RENAL FAILURE [None]
